FAERS Safety Report 6706945-1 (Version None)
Quarter: 2010Q2

REPORT INFORMATION
  Report Type: 
  Country: None (occurrence: None)
  Receive Date: 20100430
  Receipt Date: 20100430
  Transmission Date: 20101027
  Serious: Yes (Hospitalization)
  Sender: FDA-Public Use
  Company Number: None

PATIENT
  Sex: Male

DRUGS (2)
  1. SERTRALINE HCL [Suspect]
     Dosage: 50MG DAILY PO
     Route: 048
  2. TRAMADOL HCL [Suspect]
     Dosage: 150 MG DAILY PO
     Route: 048

REACTIONS (2)
  - GRAND MAL CONVULSION [None]
  - ROAD TRAFFIC ACCIDENT [None]
